FAERS Safety Report 8592180-1 (Version None)
Quarter: 2012Q3

REPORT INFORMATION
  Report Type: 
  Country: None (occurrence: None)
  Receive Date: 20120814
  Receipt Date: 20120802
  Transmission Date: 20120928
  Serious: Yes (Hospitalization, Other)
  Sender: FDA-Public Use
  Company Number: FR-ELI_LILLY_AND_COMPANY-FR201207008296

PATIENT
  Sex: Female

DRUGS (11)
  1. TAXOL [Concomitant]
     Indication: BREAST CANCER RECURRENT
     Dosage: 1 DF, UNKNOWN
     Dates: start: 20120201, end: 20120716
  2. ANAFRANIL [Concomitant]
     Dosage: 150 MG, QD
     Dates: start: 20120622, end: 20120704
  3. MIDODRINE HYDROCHLORIDE [Concomitant]
     Indication: ORTHOSTATIC HYPOTENSION
     Dosage: 12 DF, QD
     Dates: start: 20120622, end: 20120702
  4. NEXIUM [Concomitant]
     Dosage: 40 MG, UNKNOWN
     Dates: end: 20120625
  5. ZYPREXA [Suspect]
     Indication: MAJOR DEPRESSION
     Dosage: 10 MG, UNKNOWN
     Dates: start: 20120628, end: 20120716
  6. AVASTIN [Concomitant]
     Indication: BREAST CANCER RECURRENT
     Dosage: 25 DF, UNKNOWN
     Dates: start: 20120201, end: 20120716
  7. ZOFRAN [Concomitant]
     Indication: VOMITING
     Dosage: 8 MG, UNKNOWN
     Dates: start: 20120201, end: 20120716
  8. CORTICOSTEROID NOS [Concomitant]
     Dosage: 1 DF, UNKNOWN
  9. MIDODRINE HYDROCHLORIDE [Concomitant]
     Dosage: 6 DF, QD
     Dates: start: 20120703, end: 20120716
  10. CHLORPROMAZINE HCL [Concomitant]
     Indication: MAJOR DEPRESSION
     Dosage: 200 DF, QD
     Dates: start: 20120620, end: 20120628
  11. ANAFRANIL [Concomitant]
     Dosage: 75 MG, QD
     Dates: start: 20120705

REACTIONS (4)
  - CYTOLYTIC HEPATITIS [None]
  - CHOLESTASIS [None]
  - URTICARIA [None]
  - OFF LABEL USE [None]
